FAERS Safety Report 7703485-8 (Version None)
Quarter: 2011Q3

REPORT INFORMATION
  Report Type: 
  Country: None (occurrence: None)
  Receive Date: 20110823
  Receipt Date: 20110818
  Transmission Date: 20111222
  Serious: Yes (Other)
  Sender: FDA-Public Use
  Company Number: FR-PFIZER INC-2011192111

PATIENT
  Age: 6 Year

DRUGS (2)
  1. ETHOSUXIMIDE [Suspect]
     Indication: STATUS EPILEPTICUS
     Dosage: UNK
  2. VALPROIC ACID [Suspect]
     Dosage: UNK

REACTIONS (1)
  - DRUG RASH WITH EOSINOPHILIA AND SYSTEMIC SYMPTOMS [None]
